FAERS Safety Report 15811132 (Version 2)
Quarter: 2019Q1

REPORT INFORMATION
  Report Type: Report from Study
  Country: CZ (occurrence: CZ)
  Receive Date: 20190111
  Receipt Date: 20190221
  Transmission Date: 20190417
  Serious: Yes (Other)
  Sender: FDA-Public Use
  Company Number: CZ-BIOGEN-2019BI00681048

PATIENT
  Age: 30 Year
  Sex: Female

DRUGS (1)
  1. AVONEX [Suspect]
     Active Substance: INTERFERON BETA-1A
     Indication: CLINICALLY ISOLATED SYNDROME
     Route: 065

REACTIONS (3)
  - Off label use [Unknown]
  - Treatment failure [Unknown]
  - Clinically isolated syndrome [Unknown]

NARRATIVE: CASE EVENT DATE: 2011
